FAERS Safety Report 5817275-4 (Version None)
Quarter: 2008Q3

REPORT INFORMATION
  Report Type: 
  Country: None (occurrence: None)
  Receive Date: 20080722
  Receipt Date: 20080715
  Transmission Date: 20090109
  Serious: Yes (Other)
  Sender: FDA-Public Use
  Company Number: A0738695A

PATIENT
  Sex: Female

DRUGS (2)
  1. IMITREX [Suspect]
     Indication: HEADACHE
     Route: 048
  2. UNSPECIFIED MEDICATION [Concomitant]

REACTIONS (4)
  - DRUG DEPENDENCE [None]
  - HEADACHE [None]
  - HYPERSOMNIA [None]
  - THERAPEUTIC RESPONSE DECREASED [None]
